FAERS Safety Report 15501574 (Version 1)
Quarter: 2018Q4

REPORT INFORMATION
  Report Type: Spontaneous
  Country: DE (occurrence: DE)
  Receive Date: 20181015
  Receipt Date: 20181015
  Transmission Date: 20190205
  Serious: Yes (Other)
  Sender: FDA-Public Use
  Company Number: DE-JNJFOC-20181018838

PATIENT
  Sex: Male

DRUGS (2)
  1. REGAINE MANNER SCHAUM [Suspect]
     Active Substance: MINOXIDIL
     Indication: PRODUCT USED FOR UNKNOWN INDICATION
     Route: 065
  2. REGAINE MANNER SCHAUM [Suspect]
     Active Substance: MINOXIDIL
     Route: 065

REACTIONS (2)
  - Cerebrovascular accident [Unknown]
  - Blood pressure abnormal [Unknown]
